FAERS Safety Report 7768104-3 (Version None)
Quarter: 2011Q3

REPORT INFORMATION
  Report Type: 
  Country: None (occurrence: None)
  Receive Date: 20110922
  Receipt Date: 20110915
  Transmission Date: 20111222
  Serious: Yes (Hospitalization)
  Sender: FDA-Public Use
  Company Number: US-UCBSA-041351

PATIENT
  Sex: Female
  Weight: 46.7 kg

DRUGS (8)
  1. CIMZIA [Suspect]
     Indication: CROHN'S DISEASE
     Dosage: 200 MG
     Route: 058
     Dates: start: 20110829, end: 20110829
  2. AMOXICILLIN [Concomitant]
     Dosage: 1000-62.5; 2 MG, 2 TABLETS TWO TIMES A DAY
     Route: 048
  3. LONOTIL [Concomitant]
     Dosage: 2.5-0.25 MG 1-2 TABLETS
     Route: 048
  4. XANAX [Concomitant]
     Route: 048
  5. APRISO [Concomitant]
     Indication: CROHN'S DISEASE
     Dates: start: 20090901
  6. ZOFRAN [Concomitant]
     Dosage: 1 TABLET TWICE A DAY
     Route: 048
  7. AMBIEN [Concomitant]
     Route: 048
  8. FLORASTOR [Concomitant]
     Indication: CROHN'S DISEASE

REACTIONS (1)
  - INFECTION [None]
